FAERS Safety Report 9837522 (Version 1)
Quarter: 2013Q4

REPORT INFORMATION
  Report Type: Spontaneous
  Country: US (occurrence: None)
  Receive Date: 20131205
  Receipt Date: 20131205
  Transmission Date: 20140711
  Serious: Yes (Disabling, Other)
  Sender: FDA-Public Use
  Company Number: 163-POMAL-13070206

PATIENT
  Age: 52 Year
  Sex: Female
  Weight: 110.22 kg

DRUGS (25)
  1. POMALYST (POMALIDOMIDE) (4 MILLIGRAM, CAPSULES) [Suspect]
     Indication: PLASMA CELL MYELOMA
     Dosage: 4 MG, 21 IN 21 D, PO
     Route: 048
     Dates: start: 20130516
  2. AZITHROMYCIN (AZITHROMYCIN) [Concomitant]
  3. VENTOLIN (SALBUTAMOL) [Concomitant]
  4. DEXAMETHASONE (DEXAMETHASONE) [Concomitant]
  5. HYDROCORTISONE (HYDROCORTISONE) [Concomitant]
  6. DOCUSATE SODIUM (DOCUSATE SODIUM) [Concomitant]
  7. MORPHINE SULFATE (MORPHINE SULFATE) [Concomitant]
  8. IBUPROFEN (IBUPROFEN) [Concomitant]
  9. CITALOPRAM (CITALOPRAM) [Concomitant]
  10. HYDROCODONE ACETAMINOPHEN (REMEDEINE) [Concomitant]
  11. HISTOP (CHLORPHENAMINE) [Concomitant]
  12. NEXIUM (ESOMEPRAZOLE) [Concomitant]
  13. PREDNISONE (PREDNISONE) [Concomitant]
  14. SENNA LAX (SENNOSIDE A+B) [Concomitant]
  15. NYSTATIN (NYSTATIN) [Concomitant]
  16. ALKERAN (MELPHALAN) [Concomitant]
  17. ASPIRIN (ACETYLSALICYLIC ACID) [Concomitant]
  18. CELEXA (CITALOPRAM HYDROBROMIDE) [Concomitant]
  19. HYDROXYZINE (HYDROXYZINE) [Concomitant]
  20. OMEPRAZOLE (OMEPRAZOLE) [Concomitant]
  21. ONDANSETRON (ONDANSETRON) [Concomitant]
  22. CALCITONIN (CALCITONIN) [Concomitant]
  23. DIAZEPAM (DIAZEPAM) [Concomitant]
  24. CEPHALEXIN (CEFALEXIN) [Concomitant]
  25. NYSTOP (NYSTATIN) [Concomitant]

REACTIONS (11)
  - Abdominal pain [None]
  - Urinary tract infection [None]
  - Fatigue [None]
  - Rash generalised [None]
  - Muscle spasms [None]
  - Neuropathy peripheral [None]
  - Muscle spasms [None]
  - Tremor [None]
  - Asthenia [None]
  - Upper respiratory tract infection [None]
  - Decreased appetite [None]
